FAERS Safety Report 9834465 (Version 1)
Quarter: 2014Q1

REPORT INFORMATION
  Report Type: Spontaneous
  Country: BR (occurrence: BR)
  Receive Date: 20140122
  Receipt Date: 20140122
  Transmission Date: 20141002
  Serious: Yes (Hospitalization, Other)
  Sender: FDA-Public Use
  Company Number: BR-ASTRAZENECA-2014SE03588

PATIENT
  Age: 64 Year
  Sex: Female
  Weight: 74 kg

DRUGS (9)
  1. NEXIUM [Suspect]
     Indication: GASTRITIS
     Dosage: TWO TIMES A DAY
     Route: 048
     Dates: start: 2012
  2. NEXIUM [Suspect]
     Indication: OESOPHAGITIS
     Dosage: TWO TIMES A DAY
     Route: 048
     Dates: start: 2012
  3. NEXIUM [Suspect]
     Indication: GASTROOESOPHAGEAL REFLUX DISEASE
     Dosage: TWO TIMES A DAY
     Route: 048
     Dates: start: 2012
  4. QUETROS [Concomitant]
     Indication: DEPRESSION
     Route: 048
  5. QUETROS [Concomitant]
     Indication: PANIC DISORDER
     Route: 048
  6. EXODUS [Concomitant]
     Indication: DEPRESSION
     Route: 048
  7. EXODUS [Concomitant]
     Indication: PANIC DISORDER
     Route: 048
  8. APRAZ [Concomitant]
     Indication: DEPRESSION
     Route: 048
  9. APRAZ [Concomitant]
     Indication: PANIC DISORDER
     Route: 048

REACTIONS (2)
  - Oesophagitis [Recovered/Resolved]
  - Drug ineffective [Unknown]
